FAERS Safety Report 8407571 (Version 2)
Quarter: 2012Q4

REPORT INFORMATION
  Report Type: 
  Country: US (occurrence: US)
  Receive Date: 20120215
  Receipt Date: 20121206
  Transmission Date: 20130627
  Serious: Yes (Other)
  Sender: FDA-Public Use
  Company Number: US-ROCHE-783730

PATIENT
  Age: 15 Year
  Sex: Male
  Weight: 62.2 kg

DRUGS (3)
  1. ACCUTANE [Suspect]
     Indication: ACNE
     Route: 065
     Dates: start: 19941222, end: 19950110
  2. ACCUTANE [Suspect]
     Dosage: 20 mg daily for 2 weeks
     Route: 050
     Dates: start: 19950115, end: 19950622
  3. ACCUTANE [Suspect]
     Route: 065

REACTIONS (8)
  - Crohn^s disease [Unknown]
  - Inflammatory bowel disease [Unknown]
  - Intestinal haemorrhage [Unknown]
  - Stress [Unknown]
  - Acne [Unknown]
  - Epistaxis [Unknown]
  - Nasal dryness [Unknown]
  - Lip dry [Unknown]
